FAERS Safety Report 17350614 (Version 1)
Quarter: 2020Q1

REPORT INFORMATION
  Report Type: Report from Study
  Country: US (occurrence: US)
  Receive Date: 20200130
  Receipt Date: 20200130
  Transmission Date: 20200409
  Serious: Yes (Other)
  Sender: FDA-Public Use
  Company Number: US-ROCHE-2528757

PATIENT
  Sex: Female

DRUGS (2)
  1. OCREVUS [Suspect]
     Active Substance: OCRELIZUMAB
     Dosage: SUBSEQUENT DOSE OF OCRELIZUMAB:  29/OCT/2018, 03/MAY/2019
     Route: 042
     Dates: start: 20180429, end: 20190503
  2. OCREVUS [Suspect]
     Active Substance: OCRELIZUMAB
     Indication: RELAPSING MULTIPLE SCLEROSIS
     Dosage: 29/APR/2019, 29/OCT/2018, SHE RECEIVED SUBSEQUENT DOSE OF OCRELIZUMAB.
     Route: 042
     Dates: start: 20171026, end: 20171109

REACTIONS (4)
  - Demyelination [Not Recovered/Not Resolved]
  - Nausea [Recovered/Resolved]
  - Vein discolouration [Recovered/Resolved]
  - Multiple sclerosis [Not Recovered/Not Resolved]

NARRATIVE: CASE EVENT DATE: 2019
